FAERS Safety Report 6184187-9 (Version None)
Quarter: 2009Q2

REPORT INFORMATION
  Report Type: 
  Country: None (occurrence: None)
  Receive Date: 20090506
  Receipt Date: 20090506
  Transmission Date: 20091009
  Serious: Yes (Hospitalization, Other)
  Sender: FDA-Public Use
  Company Number: None

PATIENT
  Sex: Male
  Weight: 70.3075 kg

DRUGS (1)
  1. PROAIR HFA [Suspect]
     Indication: CYSTIC FIBROSIS
     Dosage: 2 PUFFS TWICE DAILY INHAL
     Route: 055
     Dates: start: 20090401, end: 20090418

REACTIONS (9)
  - BACTERIA SPUTUM IDENTIFIED [None]
  - CHILLS [None]
  - COUGH [None]
  - DEVICE MALFUNCTION [None]
  - DYSPNOEA [None]
  - MALAISE [None]
  - NIGHT SWEATS [None]
  - PRODUCT QUALITY ISSUE [None]
  - PYREXIA [None]
